FAERS Safety Report 13153620 (Version 1)
Quarter: 2017Q1

REPORT INFORMATION
  Report Type: Spontaneous
  Country: JP (occurrence: JP)
  Receive Date: 20170126
  Receipt Date: 20170126
  Transmission Date: 20170428
  Serious: Yes (Hospitalization)
  Sender: FDA-Public Use
  Company Number: JP-AMGEN-JPNSP2017012944

PATIENT
  Age: 63 Year
  Sex: Male

DRUGS (10)
  1. REGPARA [Suspect]
     Active Substance: CINACALCET HYDROCHLORIDE
     Dosage: 25 MG, QD
     Route: 048
     Dates: start: 20160502, end: 20160508
  2. REGPARA [Suspect]
     Active Substance: CINACALCET HYDROCHLORIDE
     Dosage: 25 MG, QD
     Route: 048
     Dates: start: 20160530, end: 20160717
  3. REGPARA [Suspect]
     Active Substance: CINACALCET HYDROCHLORIDE
     Dosage: 50 MG, QD
     Route: 048
     Dates: start: 20160718, end: 20160807
  4. REGPARA [Suspect]
     Active Substance: CINACALCET HYDROCHLORIDE
     Dosage: 50 MG, QD
     Route: 048
     Dates: start: 20160328, end: 20160417
  5. FOSMICIN [Concomitant]
     Active Substance: FOSFOMYCIN CALCIUM
     Dosage: 500 MG, UNK
  6. DOMPERIDONE [Concomitant]
     Active Substance: DOMPERIDONE
     Dosage: 10 UNK, AS NECESSARY
  7. REGPARA [Suspect]
     Active Substance: CINACALCET HYDROCHLORIDE
     Indication: PRODUCT USED FOR UNKNOWN INDICATION
     Dosage: 25 MG, QD
     Route: 048
     Dates: start: 20160229, end: 20160327
  8. REGPARA [Suspect]
     Active Substance: CINACALCET HYDROCHLORIDE
     Dosage: 12.5 MG, QD
     Route: 048
     Dates: start: 20160919, end: 20160920
  9. REGPARA [Suspect]
     Active Substance: CINACALCET HYDROCHLORIDE
     Dosage: 21.9 MG, QD
     Route: 048
     Dates: start: 20160509, end: 20160516
  10. REGPARA [Suspect]
     Active Substance: CINACALCET HYDROCHLORIDE
     Dosage: 25 MG, QD
     Route: 048
     Dates: start: 20160822, end: 20160918

REACTIONS (6)
  - Adjusted calcium decreased [Recovered/Resolved]
  - Gastroenteritis [Recovered/Resolved]
  - Nasopharyngitis [Recovered/Resolved]
  - Adjusted calcium decreased [Recovered/Resolved]
  - Nasopharyngitis [Recovered/Resolved]
  - Gastroenteritis [Recovered/Resolved]

NARRATIVE: CASE EVENT DATE: 20160326
